FAERS Safety Report 9513671 (Version 1)
Quarter: 2013Q1

REPORT INFORMATION
  Report Type: Spontaneous
  Country: US (occurrence: None)
  Receive Date: 20130305
  Receipt Date: 20130305
  Transmission Date: 20140127
  Serious: Yes (Other)
  Sender: FDA-Public Use
  Company Number: 163-21880-12092004

PATIENT
  Age: 79 Year
  Sex: Male
  Weight: 72.58 kg

DRUGS (9)
  1. REVLIMID [Suspect]
     Indication: PLASMA CELL MYELOMA
     Dosage: 28 IN 28 D
     Route: 048
     Dates: start: 20110211
  2. ACYCLOVIR (ACYCLOVIR) (UNKNOWN) [Concomitant]
  3. ASPIRIN (ACETYLSALICYLIC ACID) (UNKNOWN) (ACETYLSALICYLIC ACID) [Concomitant]
  4. LOPRESSOR (METOPROLOL TARTRATE) (UNKNOWN) [Concomitant]
  5. LOTREL (LOTREL) (UNKNOWN) [Concomitant]
  6. PERCOCET (OXYCOCET) (UNKNOWN) [Concomitant]
  7. VITAMIN B (VITAMIN B) (UNKNOWN) [Concomitant]
  8. VITAMIN B12 (CYANOCOBALAMIN) (UNKNOWN) [Concomitant]
  9. VITAMIN D (ERGOCALCIFEROL) (UNKNOWN) [Concomitant]

REACTIONS (2)
  - Hiccups [None]
  - Blood creatine decreased [None]
